FAERS Safety Report 7173235-5 (Version None)
Quarter: 2010Q4

REPORT INFORMATION
  Report Type: 
  Country: None (occurrence: None)
  Receive Date: 20101219
  Receipt Date: 20100223
  Transmission Date: 20110411
  Serious: No
  Sender: FDA-Public Use
  Company Number: US-AMGEN-KDL394955

PATIENT

DRUGS (5)
  1. ENBREL [Suspect]
     Indication: PSORIASIS
     Dosage: 50 MG, 2 TIMES/WK
     Route: 058
     Dates: start: 20100209
  2. OLMESARTAN MEDOXOMIL [Concomitant]
  3. INDAPAMIDE [Concomitant]
  4. ACTONEL [Concomitant]
  5. CENTRUM [Concomitant]

REACTIONS (1)
  - EYE PAIN [None]
